FAERS Safety Report 8951995 (Version 2)
Quarter: 2012Q4

REPORT INFORMATION
  Report Type: 
  Country: US (occurrence: US)
  Receive Date: 20121204
  Receipt Date: 20121219
  Transmission Date: 20130627
  Serious: Yes (Other)
  Sender: FDA-Public Use
  Company Number: US-AMGEN-USASP2012070496

PATIENT
  Age: 53 Year
  Sex: Female

DRUGS (2)
  1. ENBREL [Suspect]
     Indication: RHEUMATOID ARTHRITIS
     Dosage: 50 mg, qwk
     Dates: start: 2001
  2. HUMIRA [Concomitant]
     Dosage: UNK UNK, 2 times/wk
     Dates: start: 2004, end: 2012

REACTIONS (8)
  - Breast cancer [Recovered/Resolved]
  - Physical disability [Not Recovered/Not Resolved]
  - Joint stiffness [Not Recovered/Not Resolved]
  - Arthritis [Not Recovered/Not Resolved]
  - Musculoskeletal stiffness [Not Recovered/Not Resolved]
  - Abdominal distension [Recovered/Resolved]
  - Rheumatoid arthritis [Recovered/Resolved]
  - Injection site haemorrhage [Recovered/Resolved]
